FAERS Safety Report 7201454-8 (Version None)
Quarter: 2010Q4

REPORT INFORMATION
  Report Type: 
  Country: None (occurrence: None)
  Receive Date: 20101215
  Receipt Date: 20101202
  Transmission Date: 20110411
  Serious: Yes (Hospitalization)
  Sender: FDA-Public Use
  Company Number: UK-ACCORD-002091

PATIENT
  Age: 75 Year
  Sex: Female

DRUGS (5)
  1. SIMVASTATIN [Suspect]
     Indication: HYPERCHOLESTEROLAEMIA
     Dosage: 40.00-MG-1.0DAYS
  2. REUMACON(REUMACON) [Suspect]
     Indication: RHEUMATOID ARTHRITIS
     Dosage: 100.00-MG-2.00PER-1.0DAYS
  3. PREDNISOLONE [Concomitant]
  4. AURANOFIN [Concomitant]
  5. METHOTREXATE [Concomitant]

REACTIONS (2)
  - DRUG INTERACTION [None]
  - RHABDOMYOLYSIS [None]
